FAERS Safety Report 5815111-3 (Version None)
Quarter: 2008Q3

REPORT INFORMATION
  Report Type: 
  Country: None (occurrence: None)
  Receive Date: 20080718
  Receipt Date: 20080711
  Transmission Date: 20090109
  Serious: Yes (Other)
  Sender: FDA-Public Use
  Company Number: US-MERCK-0807USA02174

PATIENT
  Age: 28 Year
  Sex: Male

DRUGS (2)
  1. PROPECIA [Suspect]
     Route: 048
     Dates: start: 20030101, end: 20050101
  2. PROPECIA [Suspect]
     Route: 048

REACTIONS (1)
  - BLINDNESS UNILATERAL [None]
